FAERS Safety Report 8383045-9 (Version None)
Quarter: 2012Q2

REPORT INFORMATION
  Report Type: 
  Country: None (occurrence: None)
  Receive Date: 20120522
  Receipt Date: 20120510
  Transmission Date: 20120825
  Serious: Yes (Other)
  Sender: FDA-Public Use
  Company Number: DKLU1079595

PATIENT
  Age: 14 Year
  Sex: Male

DRUGS (4)
  1. SABRIL [Suspect]
     Indication: TUBEROUS SCLEROSIS
     Dosage: 1000 MG MILLIGRAM(S), EVERY MORNING, ORAL,  1500 MG MILLIGRAM(S), EVERY NIGHT, ORAL
     Route: 048
     Dates: start: 20120301, end: 20120420
  2. SABRIL [Suspect]
     Indication: CONVULSION
     Dosage: 1000 MG MILLIGRAM(S), EVERY MORNING, ORAL,  1500 MG MILLIGRAM(S), EVERY NIGHT, ORAL
     Route: 048
     Dates: start: 20120301, end: 20120420
  3. SABRIL [Suspect]
     Indication: TUBEROUS SCLEROSIS
     Dosage: 1000 MG MILLIGRAM(S), EVERY MORNING, ORAL,  1500 MG MILLIGRAM(S), EVERY NIGHT, ORAL
     Route: 048
     Dates: start: 20120301, end: 20120420
  4. SABRIL [Suspect]
     Indication: CONVULSION
     Dosage: 1000 MG MILLIGRAM(S), EVERY MORNING, ORAL,  1500 MG MILLIGRAM(S), EVERY NIGHT, ORAL
     Route: 048
     Dates: start: 20120301, end: 20120420

REACTIONS (2)
  - GENITAL INFECTION FUNGAL [None]
  - FUNGAL SKIN INFECTION [None]
